FAERS Safety Report 25793323 (Version 1)
Quarter: 2025Q3

REPORT INFORMATION
  Report Type: Spontaneous
  Country: TW (occurrence: TW)
  Receive Date: 20250911
  Receipt Date: 20250911
  Transmission Date: 20251021
  Serious: Yes (Other)
  Sender: MERCK SHARP & DOHME LLC
  Company Number: TW-009507513-2325800

PATIENT
  Age: 68 Year
  Sex: Male

DRUGS (1)
  1. PEMBROLIZUMAB [Suspect]
     Active Substance: PEMBROLIZUMAB
     Indication: Squamous cell carcinoma
     Dates: start: 202103, end: 202112

REACTIONS (4)
  - Flap surgery [Unknown]
  - Laryngectomy [Unknown]
  - Neck dissection [Unknown]
  - Tracheostomy [Unknown]

NARRATIVE: CASE EVENT DATE: 20211224
